FAERS Safety Report 9593201 (Version 2)
Quarter: 2013Q4

REPORT INFORMATION
  Report Type: Spontaneous
  Country: US (occurrence: None)
  Receive Date: 20131002
  Receipt Date: 20131024
  Transmission Date: 20140711
  Serious: Yes (Other)
  Sender: FDA-Public Use
  Company Number: 2013SA094775

PATIENT
  Age: 65 Year
  Sex: Female
  Weight: 54.43 kg

DRUGS (9)
  1. CAPZASIN HP [Suspect]
     Indication: ARTHRITIS
  2. HYDROCHLOROTHIAZIDE [Concomitant]
  3. LISINOPRIL [Concomitant]
  4. ASPIRIN [Concomitant]
  5. ZOCOR [Concomitant]
  6. PREVACID [Concomitant]
  7. SINGULAIR [Concomitant]
  8. ALL OTHER THERAPEUTIC PRODUCTS [Concomitant]
  9. LEVOTHYROXINE [Concomitant]

REACTIONS (4)
  - Application site burn [None]
  - Application site vesicles [None]
  - Skin ulcer [None]
  - Pain [None]
